FAERS Safety Report 4864760-8 (Version None)
Quarter: 2005Q4

REPORT INFORMATION
  Report Type: 
  Country: None (occurrence: None)
  Receive Date: 20051222
  Receipt Date: 20051005
  Transmission Date: 20060501
  Serious: Yes (Hospitalization)
  Sender: FDA-Public Use
  Company Number: US-MERCK-0510USA03949

PATIENT
  Age: 65 Year
  Sex: Female
  Weight: 75 kg

DRUGS (4)
  1. VIOXX [Suspect]
     Indication: ARTHRITIS
     Route: 048
     Dates: start: 20010101, end: 20041001
  2. VIOXX [Suspect]
     Indication: ARTHRALGIA
     Route: 048
     Dates: start: 20010101, end: 20041001
  3. TYLENOL [Concomitant]
     Route: 065
  4. SUDAFED 12 HOUR [Concomitant]
     Route: 065

REACTIONS (4)
  - AORTIC DISORDER [None]
  - AORTIC VALVE DISEASE [None]
  - HEART RATE INCREASED [None]
  - LOWER LIMB FRACTURE [None]
